FAERS Safety Report 7099834 (Version 3)
Quarter: 2013Q4

REPORT INFORMATION
  Report Type: Spontaneous
  Country: US (occurrence: US)
  Receive Date: 20090828
  Receipt Date: 20131031
  Transmission Date: 20140711
  Serious: Yes (Hospitalization)
  Sender: FDA-Public Use
  Company Number: US-009507513-0908USA02682

PATIENT
  Age: 76 Year
  Sex: Female

DRUGS (1)
  1. FOSAMAX [Suspect]
     Dosage: 70 MG, QW
     Route: 048
     Dates: start: 2002, end: 200809

REACTIONS (3)
  - Femur fracture [Recovering/Resolving]
  - Stress fracture [Unknown]
  - Osteoporosis [Unknown]
